FAERS Safety Report 9246984 (Version 2)
Quarter: 2013Q2

REPORT INFORMATION
  Report Type: Report from Study
  Country: JP (occurrence: JP)
  Receive Date: 20130422
  Receipt Date: 20130610
  Transmission Date: 20140414
  Serious: Yes (Hospitalization, Other)
  Sender: FDA-Public Use
  Company Number: JP-009507513-1304JPN009666

PATIENT
  Age: 39 Year
  Sex: Female
  Weight: 55.3 kg

DRUGS (9)
  1. FOLLITROPIN BETA [Suspect]
     Indication: ASSISTED FERTILISATION
     Dosage: 150 IU, QD
     Route: 030
     Dates: start: 20070330, end: 20070330
  2. FOLLITROPIN BETA [Suspect]
     Dosage: 150 IU, QD
     Route: 030
     Dates: start: 20070401, end: 20070401
  3. FOLLITROPIN BETA [Suspect]
     Dosage: 150 IU, QD
     Route: 030
     Dates: start: 20070403, end: 20070406
  4. PREGNYL 5000IU [Suspect]
     Indication: ASSISTED FERTILISATION
     Dosage: 10000 IU ONCE
     Route: 030
     Dates: start: 20070407, end: 20070407
  5. PREMARIN [Concomitant]
     Indication: ASSISTED FERTILISATION
     Dosage: 4 DF, QD
  6. PROGESTERONE [Concomitant]
     Indication: ASSISTED FERTILISATION
     Dosage: 2 DF, QD
  7. PREDONINE [Concomitant]
     Indication: ASSISTED FERTILISATION
     Dosage: 7.5 MG, QD
     Route: 048
     Dates: start: 20070330, end: 20070407
  8. ASPIRIN (+) DIHYDROXYALUMINUM AMINOACETATE (+) MAGNESIUM CARBONATE [Concomitant]
     Indication: ASSISTED FERTILISATION
     Dosage: 81 MG, QD
     Dates: start: 20070330, end: 20070407
  9. SEROPHENE [Concomitant]
     Indication: ASSISTED FERTILISATION
     Dosage: 100 MG, QD
     Route: 048
     Dates: start: 20070330, end: 20070403

REACTIONS (2)
  - Abortion [Recovering/Resolving]
  - Ovarian hyperstimulation syndrome [Recovering/Resolving]
